FAERS Safety Report 12167792 (Version 1)
Quarter: 2016Q1

REPORT INFORMATION
  Report Type: Spontaneous
  Country: US (occurrence: None)
  Receive Date: 20160309
  Receipt Date: 20160309
  Transmission Date: 20160526
  Serious: Yes (Other)
  Sender: FDA-Public Use
  Company Number: None

PATIENT
  Age: 75 Year
  Sex: Male
  Weight: 99.79 kg

DRUGS (1)
  1. METRONIDAZOLE TOPICAL CREAM 0.75% G+W LABORATORIES, INC. NEW JERSEY [Suspect]
     Active Substance: METRONIDAZOLE
     Indication: ROSACEA
     Dosage: APPLY THIN LAYER TO FACE, TWICE DAILY, TOPICAL TO FACE
     Route: 061
     Dates: start: 20151222, end: 20160222

REACTIONS (2)
  - Hypoaesthesia [None]
  - Paraesthesia [None]

NARRATIVE: CASE EVENT DATE: 20160222
